FAERS Safety Report 7512132-X (Version None)
Quarter: 2011Q2

REPORT INFORMATION
  Report Type: 
  Country: None (occurrence: None)
  Receive Date: 20110520
  Receipt Date: 20110508
  Transmission Date: 20111010
  Serious: Yes (Life-Threatening, Hospitalization, Other)
  Sender: FDA-Public Use
  Company Number: MSTR-NO-0908S-0152

PATIENT
  Age: 46 Year
  Sex: Female

DRUGS (3)
  1. MORPHINE HYDROCHLORIDE (MORPHINE HYDROCHLORIDE) [Concomitant]
  2. OXYCODONE HCL [Concomitant]
  3. METASTRON [Suspect]
     Indication: METASTATIC PAIN
     Dosage: NR, SINGLE DOSE INTRAVENOUS
     Route: 042
     Dates: start: 20090217, end: 20090217

REACTIONS (8)
  - WHITE BLOOD CELL COUNT DECREASED [None]
  - ORAL DISCOMFORT [None]
  - HOT FLUSH [None]
  - NAUSEA [None]
  - ANAEMIA [None]
  - BREAST CANCER METASTATIC [None]
  - NEOPLASM PROGRESSION [None]
  - PLATELET COUNT DECREASED [None]
